FAERS Safety Report 6092145-8 (Version None)
Quarter: 2009Q1

REPORT INFORMATION
  Report Type: 
  Country: None (occurrence: None)
  Receive Date: 20090223
  Receipt Date: 20090209
  Transmission Date: 20090719
  Serious: Yes (Hospitalization)
  Sender: FDA-Public Use
  Company Number: KV200900174

PATIENT
  Age: 53 Year
  Sex: Female

DRUGS (2)
  1. METOPROLOL SUCCINATE [Suspect]
     Indication: HYPERTENSION
     Dosage: 25 MG, QD, ORAL
     Route: 048
     Dates: end: 20090209
  2. YASMIN [Concomitant]

REACTIONS (4)
  - DIZZINESS [None]
  - HYPERTENSIVE CRISIS [None]
  - HYPOAESTHESIA [None]
  - VISUAL IMPAIRMENT [None]
